FAERS Safety Report 5376434-8 (Version None)
Quarter: 2007Q2

REPORT INFORMATION
  Report Type: 
  Country: None (occurrence: None)
  Receive Date: 20070628
  Receipt Date: 20070628
  Transmission Date: 20071010
  Serious: Yes (Hospitalization)
  Sender: FDA-Public Use
  Company Number: None

PATIENT
  Sex: Male
  Weight: 115 kg

DRUGS (1)
  1. CISPLATIN [Suspect]
     Dosage: 177 MG
     Dates: end: 20070522

REACTIONS (4)
  - CONFUSIONAL STATE [None]
  - DEHYDRATION [None]
  - ORAL INTAKE REDUCED [None]
  - PAIN [None]
